FAERS Safety Report 15139809 (Version 1)
Quarter: 2018Q3

REPORT INFORMATION
  Report Type: Spontaneous
  Country: US (occurrence: US)
  Receive Date: 20180713
  Receipt Date: 20180713
  Transmission Date: 20181010
  Serious: No
  Sender: FDA-Public Use
  Company Number: US-SA-2018SA183653

PATIENT
  Sex: Female

DRUGS (14)
  1. SYNTHROID [Concomitant]
     Active Substance: LEVOTHYROXINE SODIUM
  2. AUBAGIO [Suspect]
     Active Substance: TERIFLUNOMIDE
     Indication: MULTIPLE SCLEROSIS
     Dosage: 7 MG, QD
     Dates: start: 201805
  3. DOXYCYCLINE. [Concomitant]
     Active Substance: DOXYCYCLINE
  4. TIZANIDINE. [Concomitant]
     Active Substance: TIZANIDINE
  5. CYMBALTA [Concomitant]
     Active Substance: DULOXETINE HYDROCHLORIDE
  6. VITAMIN D2 [Concomitant]
     Active Substance: ERGOCALCIFEROL
  7. XANAX [Concomitant]
     Active Substance: ALPRAZOLAM
  8. CLONAZEPAM. [Concomitant]
     Active Substance: CLONAZEPAM
  9. TURMERIC [CURCUMA LONGA] [Concomitant]
  10. SINGULAIR [Concomitant]
     Active Substance: MONTELUKAST SODIUM
  11. PROBIOTIN [Concomitant]
  12. TOPIRAMATE. [Concomitant]
     Active Substance: TOPIRAMATE
  13. CALCIUM [Concomitant]
     Active Substance: CALCIUM
  14. BIOTIN [Concomitant]
     Active Substance: BIOTIN

REACTIONS (1)
  - Alopecia [Unknown]
